FAERS Safety Report 9778873 (Version 1)
Quarter: 2013Q4

REPORT INFORMATION
  Report Type: Spontaneous
  Country: CH (occurrence: CH)
  Receive Date: 20131223
  Receipt Date: 20131223
  Transmission Date: 20140711
  Serious: Yes (Hospitalization)
  Sender: FDA-Public Use
  Company Number: CH-TEVA-452221ISR

PATIENT
  Age: 54 Year
  Sex: Male

DRUGS (30)
  1. NOPIL FORTE [Suspect]
     Indication: PROPHYLAXIS
     Dosage: .4286 DOSAGE FORMS DAILY; 1 DF = 800MG SULFAMETHOXAZOLE + 160MG TRIMETHOPRIM
     Route: 048
     Dates: start: 20131122
  2. BUSILVEX [Suspect]
     Indication: PROPHYLAXIS
     Dosage: 256 MILLIGRAM DAILY;
     Route: 041
     Dates: start: 20131128, end: 20131201
  3. ATG-FRESENIUS S [Suspect]
     Indication: PROPHYLAXIS
     Dosage: 400 MILLIGRAM DAILY;
     Route: 041
     Dates: start: 20131129, end: 20131129
  4. ATG-FRESENIUS S [Suspect]
     Dosage: 800 MILLIGRAM DAILY;
     Route: 041
     Dates: start: 20131130, end: 20131130
  5. ATG-FRESENIUS S [Suspect]
     Dosage: 1600 MILLIGRAM DAILY;
     Route: 041
     Dates: start: 20131201, end: 20131201
  6. ENDOXAN [Suspect]
     Indication: PROPHYLAXIS
     Dosage: 4800 MILLIGRAM DAILY;
     Route: 041
     Dates: start: 20131126, end: 20131127
  7. SOLU MEDROL [Suspect]
     Indication: PROPHYLAXIS
     Dosage: 80 MILLIGRAM DAILY;
     Route: 041
     Dates: start: 20131129, end: 20131201
  8. AMIKIN [Suspect]
     Indication: INFECTION
     Dosage: 1 GRAM DAILY;
     Route: 041
     Dates: start: 20131128, end: 20131130
  9. CEFEPIM [Suspect]
     Indication: BACTERIAL INFECTION
     Dosage: 6 GRAM DAILY;
     Route: 041
     Dates: start: 20131128, end: 20131205
  10. DIFLUCAN [Suspect]
     Indication: PROPHYLAXIS
     Dosage: 57.1429 MILLIGRAM DAILY;
     Route: 048
     Dates: start: 20131121
  11. VALTREX [Suspect]
     Indication: PROPHYLAXIS
     Dosage: 1000 MILLIGRAM DAILY;
     Route: 048
     Dates: start: 20131121
  12. LASIX [Suspect]
     Indication: DIURETIC THERAPY
     Route: 041
     Dates: start: 20131126
  13. PANTOZOL [Suspect]
     Indication: PROPHYLAXIS
     Dosage: 40 MILLIGRAM DAILY;
     Route: 048
     Dates: start: 20131122
  14. ZYLORIC [Suspect]
     Indication: GOUT
     Dosage: 300 MILLIGRAM DAILY;
     Route: 048
     Dates: start: 20131121, end: 20131203
  15. ALOXI [Suspect]
     Indication: NAUSEA
     Dosage: .25 MILLIGRAM DAILY;
     Route: 041
     Dates: start: 20131126, end: 20131126
  16. ALOXI [Suspect]
     Indication: VOMITING
  17. UROMITEXAN [Suspect]
     Indication: PROPHYLAXIS
     Dosage: 1 DOSAGE FORMS DAILY; ON 26-NOV-2013 AND 27-NOV-2013 12 VIALS, ON 28-NOV-2013 5 VIALS
     Route: 041
     Dates: start: 20131126, end: 20131128
  18. EMEND [Suspect]
     Indication: NAUSEA
     Dosage: 125 MILLIGRAM DAILY;
     Route: 041
     Dates: start: 20131126, end: 20131126
  19. EMEND [Suspect]
     Indication: VOMITING
     Dosage: 80 MILLIGRAM DAILY;
     Route: 041
     Dates: start: 20131127, end: 20131203
  20. SANDIMMUN [Concomitant]
     Indication: PROPHYLAXIS
     Dosage: 225 MILLIGRAM DAILY;
     Route: 041
     Dates: start: 20131201, end: 20131203
  21. SANDIMMUN [Concomitant]
     Dosage: 300 MILLIGRAM DAILY;
     Route: 041
     Dates: start: 20131204, end: 20131205
  22. SOLU CORTEF [Concomitant]
     Indication: PRODUCT USED FOR UNKNOWN INDICATION
     Route: 065
     Dates: start: 20131204, end: 20131204
  23. FORTECORTIN [Concomitant]
     Indication: PRODUCT USED FOR UNKNOWN INDICATION
     Route: 042
     Dates: start: 20131126, end: 20131129
  24. FORTECORTIN [Concomitant]
     Route: 042
     Dates: start: 20131205, end: 20131205
  25. TAVEGYL [Concomitant]
     Indication: PRODUCT USED FOR UNKNOWN INDICATION
     Route: 042
     Dates: start: 20131129, end: 20131201
  26. TAVEGYL [Concomitant]
     Route: 042
     Dates: start: 20131204, end: 20131204
  27. PASPERTIN [Concomitant]
     Indication: PRODUCT USED FOR UNKNOWN INDICATION
     Route: 042
     Dates: start: 20131127, end: 20131127
  28. HEPARIN [Concomitant]
     Indication: PRODUCT USED FOR UNKNOWN INDICATION
     Dosage: CONTINUING
     Route: 042
     Dates: start: 20131126
  29. URSOFALK [Concomitant]
     Indication: PRODUCT USED FOR UNKNOWN INDICATION
     Dosage: 750 MILLIGRAM DAILY; CONTINUING
     Route: 048
     Dates: start: 20131126
  30. TAZOBAC [Concomitant]
     Indication: PRODUCT USED FOR UNKNOWN INDICATION
     Route: 042
     Dates: start: 20131205, end: 20131206

REACTIONS (4)
  - Jaundice [Recovering/Resolving]
  - Haemolysis [Unknown]
  - Hyperbilirubinaemia [Recovering/Resolving]
  - Hepatic enzyme increased [Recovering/Resolving]
